FAERS Safety Report 15988172 (Version 1)
Quarter: 2019Q1

REPORT INFORMATION
  Report Type: Spontaneous
  Country: PL (occurrence: PL)
  Receive Date: 20190221
  Receipt Date: 20190221
  Transmission Date: 20190418
  Serious: Yes (Other)
  Sender: FDA-Public Use
  Company Number: PL-PROVELL PHARMACEUTICALS-2062991

PATIENT
  Sex: Female

DRUGS (1)
  1. EUTHYROX [Suspect]
     Active Substance: LEVOTHYROXINE SODIUM
     Indication: AUTOIMMUNE THYROIDITIS

REACTIONS (5)
  - Metrorrhagia [Recovered/Resolved]
  - Gestational diabetes [None]
  - Palpitations [None]
  - Weight decreased [None]
  - Maternal exposure during pregnancy [None]
